FAERS Safety Report 8048438-8 (Version None)
Quarter: 2012Q1

REPORT INFORMATION
  Report Type: 
  Country: None (occurrence: None)
  Receive Date: 20120117
  Receipt Date: 20120109
  Transmission Date: 20120608
  Serious: No
  Sender: FDA-Public Use
  Company Number: US-PFIZER INC-2012006203

PATIENT
  Sex: Female
  Weight: 48.98 kg

DRUGS (2)
  1. LOMOTIL [Suspect]
     Indication: DIARRHOEA
     Dosage: UNK MG, UNK
     Route: 048
     Dates: start: 19700101
  2. LOMOTIL [Suspect]
     Indication: COLITIS
     Dosage: 2.5 MG, 1X/DAY

REACTIONS (3)
  - EXPIRED DRUG ADMINISTERED [None]
  - DIARRHOEA [None]
  - MALAISE [None]
